FAERS Safety Report 23566920 (Version 1)
Quarter: 2024Q1

REPORT INFORMATION
  Report Type: Spontaneous
  Country: US (occurrence: US)
  Receive Date: 20240226
  Receipt Date: 20240226
  Transmission Date: 20240409
  Serious: No
  Sender: FDA-Public Use
  Company Number: US-AMNEAL PHARMACEUTICALS-2023-AMRX-03012

PATIENT
  Sex: Male
  Weight: 92.971 kg

DRUGS (1)
  1. RYTARY [Suspect]
     Active Substance: CARBIDOPA\LEVODOPA
     Indication: Parkinson^s disease
     Dosage: 6 TIMES PER DAY
     Route: 065

REACTIONS (3)
  - Blood pressure increased [Unknown]
  - Hallucination [Unknown]
  - Drug ineffective [Unknown]
